FAERS Safety Report 7602543-6 (Version None)
Quarter: 2011Q3

REPORT INFORMATION
  Report Type: 
  Country: None (occurrence: None)
  Receive Date: 20110707
  Receipt Date: 20110415
  Transmission Date: 20111222
  Serious: Yes (Hospitalization)
  Sender: FDA-Public Use
  Company Number: US-CYPR-2011-000013

PATIENT
  Sex: Female
  Weight: 86.1834 kg

DRUGS (7)
  1. ASPIRIN [Suspect]
     Indication: ANTIPLATELET THERAPY
     Dosage: (81 MG QD ORAL), (325 MG QD ORAL)
     Route: 048
     Dates: start: 20101018
  2. ASPIRIN [Suspect]
     Indication: ANTIPLATELET THERAPY
     Dosage: (81 MG QD ORAL), (325 MG QD ORAL)
     Route: 048
     Dates: start: 20091024, end: 20101018
  3. SYNTHROID [Concomitant]
  4. PRASUGREL OR PLACEBO 10 MG (ELI LILLY) [Suspect]
     Indication: ANTIPLATELET THERAPY
     Dosage: (10 MG QD ORAL)
     Route: 048
     Dates: start: 20101001
  5. BYETTA [Concomitant]
  6. HYZAAR [Concomitant]
  7. CYPHER STENT [Concomitant]

REACTIONS (1)
  - ANGINA UNSTABLE [None]
